FAERS Safety Report 7816947-X (Version None)
Quarter: 2011Q4

REPORT INFORMATION
  Report Type: 
  Country: None (occurrence: None)
  Receive Date: 20111013
  Receipt Date: 20111004
  Transmission Date: 20120403
  Serious: Yes (Hospitalization)
  Sender: FDA-Public Use
  Company Number: US-2011-10694

PATIENT
  Age: 69 Year
  Sex: Male

DRUGS (6)
  1. JANUVIA [Concomitant]
  2. UNSPECIFIED MEDICATION FOR URIC ACID [Concomitant]
  3. HYDROCHLOROTHIAZIDE [Concomitant]
  4. INSULIN (INSULIN ZINC SUSPENSION) [Concomitant]
  5. SAMSCA [Suspect]
     Dosage: 15 MG MILLIGRAM(S), DAILY DOSE, ORAL
     Route: 048
     Dates: start: 20110801
  6. WARFARIN SODIUM [Concomitant]

REACTIONS (13)
  - THIRST [None]
  - BLOOD UREA INCREASED [None]
  - GOUT [None]
  - BLOOD CREATININE INCREASED [None]
  - FLUID OVERLOAD [None]
  - DYSPNOEA [None]
  - INTERNATIONAL NORMALISED RATIO FLUCTUATION [None]
  - REFUSAL OF TREATMENT BY PATIENT [None]
  - CATARACT [None]
  - HYPOACUSIS [None]
  - BLOOD MAGNESIUM DECREASED [None]
  - BLOOD GLUCOSE INCREASED [None]
  - BLOOD SODIUM DECREASED [None]
